FAERS Safety Report 12953026 (Version 1)
Quarter: 2016Q4

REPORT INFORMATION
  Report Type: Spontaneous
  Country: US (occurrence: US)
  Receive Date: 20161117
  Receipt Date: 20161117
  Transmission Date: 20170207
  Serious: No
  Sender: FDA-Public Use
  Company Number: US-ELI_LILLY_AND_COMPANY-US201607012934

PATIENT
  Weight: 85.26 kg

DRUGS (3)
  1. CYMBALTA [Suspect]
     Active Substance: DULOXETINE HYDROCHLORIDE
     Indication: DEPRESSION
     Dosage: UNK, UNKNOWN
     Route: 065
  2. CYMBALTA [Suspect]
     Active Substance: DULOXETINE HYDROCHLORIDE
     Dosage: 30 MG, EACH MORNING
     Route: 065
     Dates: end: 20140901
  3. CYMBALTA [Suspect]
     Active Substance: DULOXETINE HYDROCHLORIDE
     Dosage: 60 MG, EACH MORNING
     Route: 065
     Dates: start: 20140801

REACTIONS (16)
  - Anxiety [Unknown]
  - Dysphoria [Unknown]
  - Nausea [Unknown]
  - Insomnia [Unknown]
  - Glucose tolerance impaired [Unknown]
  - Blood pressure increased [Unknown]
  - Disturbance in attention [Recovered/Resolved]
  - Vomiting [Unknown]
  - Decreased appetite [Unknown]
  - Asthenia [Recovered/Resolved]
  - Drug withdrawal syndrome [Unknown]
  - Headache [Unknown]
  - Paraesthesia [Unknown]
  - Dysphagia [Unknown]
  - Weight decreased [Unknown]
  - Panic attack [Unknown]
